FAERS Safety Report 17944612 (Version 1)
Quarter: 2020Q2

REPORT INFORMATION
  Report Type: Spontaneous
  Country: US (occurrence: US)
  Receive Date: 20200625
  Receipt Date: 20200625
  Transmission Date: 20200714
  Serious: Yes (Other)
  Sender: FDA-Public Use
  Company Number: US-PFIZER INC-2020243316

PATIENT
  Age: 67 Year
  Sex: Male

DRUGS (1)
  1. VYNDAQEL [Suspect]
     Active Substance: TAFAMIDIS MEGLUMINE
     Indication: AMYLOIDOSIS
     Dosage: 80 MG

REACTIONS (10)
  - Joint range of motion decreased [Unknown]
  - Poor quality product administered [Unknown]
  - Condition aggravated [Unknown]
  - Hallucination [Unknown]
  - Intentional product use issue [Unknown]
  - Cardiac amyloidosis [Unknown]
  - Feeling abnormal [Unknown]
  - Gout [Unknown]
  - Gait disturbance [Unknown]
  - Fatigue [Unknown]
